FAERS Safety Report 23235690 (Version 2)
Quarter: 2023Q4

REPORT INFORMATION
  Report Type: Spontaneous
  Country: US (occurrence: US)
  Receive Date: 20231128
  Receipt Date: 20231130
  Transmission Date: 20240109
  Serious: No
  Sender: FDA-Public Use
  Company Number: US-AMGEN-USASP2023211615

PATIENT
  Age: 72 Year
  Sex: Male

DRUGS (2)
  1. REPATHA [Suspect]
     Active Substance: EVOLOCUMAB
     Indication: Blood cholesterol increased
     Dosage: 140 MILLIGRAM (EVERY 14 TO 17 DAYS)
     Route: 065
     Dates: start: 2019
  2. REPATHA [Suspect]
     Active Substance: EVOLOCUMAB
     Dosage: 140 MILLIGRAM (EVERY 14 TO 17 DAYS)
     Route: 065
     Dates: start: 2019

REACTIONS (5)
  - Injection site pain [Unknown]
  - Intentional product misuse [Unknown]
  - Device difficult to use [Unknown]
  - Device use error [Unknown]
  - Off label use [Unknown]

NARRATIVE: CASE EVENT DATE: 20231121
